FAERS Safety Report 5158641-2 (Version None)
Quarter: 2006Q4

REPORT INFORMATION
  Report Type: 
  Country: None (occurrence: None)
  Receive Date: 20061128
  Receipt Date: 20060302
  Transmission Date: 20070319
  Serious: Yes (Hospitalization, Other)
  Sender: FDA-Public Use
  Company Number: GB-ELI_LILLY_AND_COMPANY-GB200603000740

PATIENT
  Age: 59 Year
  Sex: Male
  Weight: 78 kg

DRUGS (7)
  1. LOSARTAN POSTASSIUM [Concomitant]
     Dosage: 25 MG, DAILY (1/D)
  2. HUMALOG MIX 75/25 [Suspect]
     Indication: DIABETES MELLITUS
     Dosage: 65 U, 2/D
     Dates: end: 20030201
  3. HUMALOG MIX 75/25 [Suspect]
     Dosage: 8 U, 2/D
     Dates: start: 20021111
  4. HUMALOG MIX 75/25 [Suspect]
     Dosage: 12 U, UNK
     Route: 058
     Dates: end: 20060316
  5. HUMALOG [Suspect]
     Indication: DIABETES MELLITUS
     Dosage: 20 U, OTHER
  6. HUMALOG [Suspect]
     Dosage: 12 U, 3/D
     Dates: start: 20030201, end: 20060301
  7. INSULIN GLARGINE [Concomitant]
     Indication: DIABETES MELLITUS
     Dosage: UNK, EACH EVENING
     Dates: start: 20030201

REACTIONS (4)
  - ANGINA PECTORIS [None]
  - COUGH [None]
  - DYSPNOEA [None]
  - MYOCARDIAL INFARCTION [None]
